FAERS Safety Report 21694633 (Version 4)
Quarter: 2024Q3

REPORT INFORMATION
  Report Type: Spontaneous
  Country: IN (occurrence: IN)
  Receive Date: 20221207
  Receipt Date: 20240801
  Transmission Date: 20241017
  Serious: No
  Sender: PFIZER
  Company Number: IN-PFIZER INC-PV202200118174

PATIENT
  Age: 59 Year
  Sex: Male

DRUGS (3)
  1. INLYTA [Suspect]
     Active Substance: AXITINIB
     Indication: Metastatic renal cell carcinoma
     Dosage: 5 MG, 2X/DAY
     Route: 048
     Dates: start: 202202
  2. INLYTA [Suspect]
     Active Substance: AXITINIB
     Dosage: 7 MG (5MG+1MG+1MG) TO CONTINUE FOR 6 MONTHS, TWICE DAILY
     Route: 048
     Dates: start: 20231128
  3. INLYTA [Suspect]
     Active Substance: AXITINIB
     Dosage: 6 MG (5 MG+1 MG), 2X/DAY FOR 3 MONTHS
     Route: 048
     Dates: start: 20240722

REACTIONS (2)
  - Neoplasm progression [Not Recovered/Not Resolved]
  - Back pain [Not Recovered/Not Resolved]

NARRATIVE: CASE EVENT DATE: 20220101
